FAERS Safety Report 6431652-2 (Version None)
Quarter: 2009Q4

REPORT INFORMATION
  Report Type: 
  Country: None (occurrence: None)
  Receive Date: 20091103
  Receipt Date: 20091027
  Transmission Date: 20100525
  Serious: Yes (Other)
  Sender: FDA-Public Use
  Company Number: LTI2009A00310

PATIENT
  Age: 26 Year
  Sex: Male

DRUGS (2)
  1. COMPETACT (PIOGLITAZONE HYDROCHLORIDE, METFORMIN HYDROCHLORIDE) [Suspect]
     Indication: INSULIN-REQUIRING TYPE 2 DIABETES MELLITUS
     Dosage: 3 DF (1 DF, 3 IN 1 D), ORAL
     Route: 048
     Dates: start: 20070101, end: 20090401
  2. INSULIN (INSULIN) [Concomitant]

REACTIONS (3)
  - FALL [None]
  - FOOT FRACTURE [None]
  - OSTEOPENIA [None]
